FAERS Safety Report 9254286 (Version 3)
Quarter: 2013Q2

REPORT INFORMATION
  Report Type: Report from Study
  Country: US (occurrence: US)
  Receive Date: 20130425
  Receipt Date: 20130507
  Transmission Date: 20140414
  Serious: Yes (Hospitalization)
  Sender: FDA-Public Use
  Company Number: PHEH2013US009061

PATIENT
  Age: 38 Year
  Sex: Male

DRUGS (2)
  1. GILENYA [Suspect]
     Indication: MULTIPLE SCLEROSIS
     Dosage: 0.5 MG, QD
     Route: 048
     Dates: start: 20130403, end: 20130423
  2. PREVACID [Concomitant]

REACTIONS (6)
  - Pain [Unknown]
  - Feeling abnormal [Unknown]
  - Dyspepsia [Unknown]
  - Chest pain [Unknown]
  - Abdominal pain upper [Unknown]
  - Fatigue [Unknown]
